FAERS Safety Report 7602240-7 (Version None)
Quarter: 2011Q3

REPORT INFORMATION
  Report Type: 
  Country: None (occurrence: None)
  Receive Date: 20110711
  Receipt Date: 20110630
  Transmission Date: 20111222
  Serious: Yes (Hospitalization, Other)
  Sender: FDA-Public Use
  Company Number: US-AMGEN-KDC429646

PATIENT
  Age: 64 Year
  Sex: Male
  Weight: 125.3 kg

DRUGS (8)
  1. FISH OIL [Concomitant]
     Dosage: UNK UNK, QD
     Dates: end: 20100801
  2. DOCETAXEL [Concomitant]
     Dosage: 75 MG/M2, Q3WK
     Dates: start: 20090304
  3. SIMVASTATIN [Concomitant]
     Dosage: 80 MG, QD
     Route: 048
  4. DENOSUMAB [Suspect]
     Indication: METASTASES TO BONE
     Dosage: 120 MG, Q4WK
     Route: 058
     Dates: start: 20100324, end: 20100714
  5. PEGFILGRASTIM [Concomitant]
     Dosage: 6 MG, QD
     Route: 058
     Dates: start: 20100722, end: 20100821
  6. TERAZOSIN HCL [Concomitant]
     Dosage: 6 MG, 2 TIMES/WK
     Route: 048
  7. ASCORBIC ACID [Concomitant]
     Dosage: UNK UNK, QD
     Route: 048
     Dates: end: 20100801
  8. GOSERELIN [Concomitant]
     Dosage: 10.8 MG, UNK
     Route: 058

REACTIONS (2)
  - OSTEONECROSIS OF JAW [None]
  - INFECTION [None]
